FAERS Safety Report 25683178 (Version 1)
Quarter: 2025Q3

REPORT INFORMATION
  Report Type: Spontaneous
  Country: US (occurrence: US)
  Receive Date: 20250814
  Receipt Date: 20250814
  Transmission Date: 20251020
  Serious: Yes (Hospitalization, Other)
  Sender: ELI LILLY AND COMPANY
  Company Number: US-ELI_LILLY_AND_COMPANY-US202508008860

PATIENT
  Age: 66 Year
  Sex: Male

DRUGS (5)
  1. MOUNJARO [Suspect]
     Active Substance: TIRZEPATIDE
     Indication: Product used for unknown indication
     Route: 065
  2. HUMALOG [Suspect]
     Active Substance: INSULIN LISPRO
     Indication: Product used for unknown indication
     Route: 065
  3. HUMALOG [Suspect]
     Active Substance: INSULIN LISPRO
     Route: 065
  4. LANTUS SOLOSTAR [Suspect]
     Active Substance: INSULIN GLARGINE
     Indication: Diabetes mellitus
     Dosage: 101 U, DAILY
     Route: 065
     Dates: start: 20250424
  5. LANTUS SOLOSTAR [Suspect]
     Active Substance: INSULIN GLARGINE
     Route: 065

REACTIONS (23)
  - Syncope [Unknown]
  - Weight decreased [Unknown]
  - Myocardial infarction [Unknown]
  - Syncope [Unknown]
  - Seizure [Unknown]
  - Chills [Unknown]
  - Blood glucose increased [Unknown]
  - Tremor [Unknown]
  - Headache [Unknown]
  - Blood magnesium decreased [Unknown]
  - Hepatic steatosis [Unknown]
  - Cerebrovascular accident [Unknown]
  - Lipase increased [Unknown]
  - Nausea [Unknown]
  - Vomiting [Unknown]
  - Impaired gastric emptying [Unknown]
  - Cold sweat [Unknown]
  - Hyperhidrosis [Unknown]
  - Pallor [Unknown]
  - Blood lactic acid increased [Unknown]
  - Abdominal pain upper [Unknown]
  - Injection site pain [Unknown]
  - Injection site bruising [Unknown]

NARRATIVE: CASE EVENT DATE: 20250101
